FAERS Safety Report 13600692 (Version 1)
Quarter: 2017Q2

REPORT INFORMATION
  Report Type: Report from Study
  Country: None (occurrence: US)
  Receive Date: 20170601
  Receipt Date: 20170601
  Transmission Date: 20170830
  Serious: Yes (Hospitalization, Other)
  Sender: FDA-Public Use
  Company Number: US-ABBVIE-17K-163-1988883-00

PATIENT
  Sex: Female

DRUGS (1)
  1. HUMIRA [Suspect]
     Active Substance: ADALIMUMAB
     Indication: HIDRADENITIS
     Route: 058

REACTIONS (10)
  - Central nervous system lesion [Unknown]
  - Cyclic vomiting syndrome [Unknown]
  - Cardiac arrest [Unknown]
  - Staphylococcal infection [Unknown]
  - Drug ineffective [Unknown]
  - Endotracheal intubation complication [Unknown]
  - Pulmonary embolism [Unknown]
  - Nausea [Unknown]
  - Paralysis [Not Recovered/Not Resolved]
  - Vitamin B1 deficiency [Unknown]
